FAERS Safety Report 24397227 (Version 1)
Quarter: 2024Q4

REPORT INFORMATION
  Report Type: Spontaneous
  Country: US (occurrence: US)
  Receive Date: 20241004
  Receipt Date: 20241004
  Transmission Date: 20250115
  Serious: Yes (Other)
  Sender: SANDOZ
  Company Number: US-MLMSERVICE-20240923-PI204892-00218-1

PATIENT
  Age: 81 Year
  Sex: Male

DRUGS (2)
  1. METHOTREXATE [Suspect]
     Active Substance: METHOTREXATE
     Indication: Rheumatoid arthritis
     Dosage: 20 MG (TITRATED UP TO 20 MG MORE THAN A YEAR AGO)
     Route: 065
  2. METHOTREXATE [Suspect]
     Active Substance: METHOTREXATE
     Dosage: UNK (TAKING METHOTREXATE FOR TWO AND A HALF YEARS)
     Route: 065

REACTIONS (1)
  - Rheumatoid lung [Unknown]
